FAERS Safety Report 8905757 (Version 1)
Quarter: 2012Q4

REPORT INFORMATION
  Report Type: 
  Country: US (occurrence: US)
  Receive Date: 20121113
  Receipt Date: 20121113
  Transmission Date: 20130627
  Serious: No
  Sender: FDA-Public Use
  Company Number: US-ASTRAZENECA-2012SE81773

PATIENT
  Age: 39 Year
  Sex: Female

DRUGS (1)
  1. SEROQUEL XR [Suspect]
     Indication: HYPOMANIA
     Route: 048
     Dates: start: 2012

REACTIONS (6)
  - Mania [Unknown]
  - Anger [Unknown]
  - Panic reaction [Unknown]
  - Formication [Unknown]
  - Off label use [Unknown]
  - Off label use [Unknown]
